FAERS Safety Report 12771870 (Version 1)
Quarter: 2016Q3

REPORT INFORMATION
  Report Type: Spontaneous
  Country: US (occurrence: US)
  Receive Date: 20160922
  Receipt Date: 20160922
  Transmission Date: 20161109
  Serious: Yes (Hospitalization, Disabling, Other)
  Sender: FDA-Public Use
  Company Number: US-UCBSA-2016021311

PATIENT
  Sex: Female
  Weight: 73 kg

DRUGS (13)
  1. KEPPRA [Suspect]
     Active Substance: LEVETIRACETAM
     Dosage: 500 MG, ONCE EVERY NIGHT
     Route: 048
     Dates: start: 201605, end: 20160528
  2. KEPPRA [Suspect]
     Active Substance: LEVETIRACETAM
     Indication: SYNCOPE
     Dosage: 250 MG, 2X/DAY (BID)
     Route: 048
     Dates: start: 20160118, end: 201601
  3. KEPPRA [Suspect]
     Active Substance: LEVETIRACETAM
     Dosage: 250 MG, ONCE EVERY NIGHT
     Route: 048
     Dates: start: 20160121, end: 2016
  4. KEPPRA [Suspect]
     Active Substance: LEVETIRACETAM
     Indication: SEIZURE
     Dosage: UNK
  5. KEPPRA [Suspect]
     Active Substance: LEVETIRACETAM
     Dosage: 250 MG, ONCE EVERY NIGHT
     Route: 048
     Dates: start: 20160529
  6. GLIPIZIDE. [Concomitant]
     Active Substance: GLIPIZIDE
     Indication: DIABETES MELLITUS
     Dosage: 5 MG, AS NEEDED STARTED 4 TO 5 YEARS AGO
     Route: 048
  7. GLIPIZIDE. [Concomitant]
     Active Substance: GLIPIZIDE
     Dosage: 5MG BID, + ADD 5 MG FOR BS } 150
  8. MTX [Concomitant]
     Active Substance: METHOTREXATE SODIUM
     Indication: RHEUMATOID ARTHRITIS
     Dosage: 4 DF, ONCE A WEEK STARTED 6 YEARS AGO
     Route: 048
  9. VITAMIN D3 [Concomitant]
     Active Substance: CHOLECALCIFEROL
     Indication: VITAMIN D DEFICIENCY
     Dosage: 2000 IU, UNK
  10. PREDNISONE. [Concomitant]
     Active Substance: PREDNISONE
     Indication: RHEUMATOID ARTHRITIS
     Dosage: 3 DF, UNK STARTED 6 YEARS AGO
  11. MTX [Concomitant]
     Active Substance: METHOTREXATE SODIUM
     Dosage: 10 MG, UNK
     Route: 048
  12. PROLIA [Concomitant]
     Active Substance: DENOSUMAB
     Indication: OSTEOPOROSIS
     Dosage: UNK, EV 6 MONTHS
  13. LEVOTHROID [Concomitant]
     Active Substance: LEVOTHYROXINE SODIUM
     Indication: HYPOTHYROIDISM
     Dosage: 75 MG, ONCE DAILY (QD) STARTED MANY YEARS AGO
     Route: 048

REACTIONS (5)
  - Asthenia [Not Recovered/Not Resolved]
  - Decubitus ulcer [Unknown]
  - Fall [Recovered/Resolved]
  - Sepsis [Unknown]
  - Syncope [Recovered/Resolved]

NARRATIVE: CASE EVENT DATE: 2016
